FAERS Safety Report 17863073 (Version 1)
Quarter: 2020Q2

REPORT INFORMATION
  Report Type: Other
  Country: DE (occurrence: DE)
  Receive Date: 20200605
  Receipt Date: 20200605
  Transmission Date: 20200714
  Serious: Yes (Hospitalization)
  Sender: FDA-Public Use
  Company Number: DE-CELLTRION INC.-2020DE022843

PATIENT

DRUGS (13)
  1. DOXORUBICIN [Suspect]
     Active Substance: DOXORUBICIN
     Dosage: UNK
  2. ALLOPURINOL. [Concomitant]
     Active Substance: ALLOPURINOL
     Dosage: 300 MG, 1-0-0-0
  3. BORTEZOMIB. [Suspect]
     Active Substance: BORTEZOMIB
     Dosage: UNK
  4. NEBIVOLOL. [Concomitant]
     Active Substance: NEBIVOLOL
     Dosage: 5 MG, 0-0-1-0
  5. CYCLOPHOSPHAMID [Suspect]
     Active Substance: CYCLOPHOSPHAMIDE
     Dosage: UNK
  6. PREDNISOLON [PREDNISOLONE] [Suspect]
     Active Substance: PREDNISOLONE
     Dosage: UNK
  7. COTRIM-CT [Concomitant]
     Dosage: 800/160 MG, 3X
  8. OMEPRAZOL [OMEPRAZOLE] [Concomitant]
     Active Substance: OMEPRAZOLE
     Dosage: 40 MG, 1-0-0-0
  9. RITUXIMAB (UNKNOWN) [Suspect]
     Active Substance: RITUXIMAB
     Dosage: UNK
  10. ENALAPRIL [Concomitant]
     Active Substance: ENALAPRIL
     Dosage: 10 MG, 1-0-0-0
  11. ACICLOVIR [Concomitant]
     Active Substance: ACYCLOVIR
     Dosage: 400 MG, 1-0-0-0
  12. METFORMIN [Concomitant]
     Active Substance: METFORMIN HYDROCHLORIDE
     Dosage: 1000 MG, 1-0-1-0
  13. LEVOTHYROXINE-NATRIUM [Concomitant]
     Dosage: 0.1 MG, 1-0-0-0

REACTIONS (2)
  - Anaemia [Unknown]
  - Melaena [Unknown]
